FAERS Safety Report 8049378-0 (Version None)
Quarter: 2012Q1

REPORT INFORMATION
  Report Type: 
  Country: None (occurrence: None)
  Receive Date: 20120117
  Receipt Date: 20120111
  Transmission Date: 20120608
  Serious: Yes (Hospitalization)
  Sender: FDA-Public Use
  Company Number: JP-ROCHE-1030686

PATIENT
  Age: 76 Year
  Sex: Female
  Weight: 38 kg

DRUGS (6)
  1. OXALIPLATIN [Suspect]
     Indication: LARGE INTESTINE CARCINOMA
     Route: 041
     Dates: end: 20111221
  2. TS-1 [Concomitant]
     Indication: LARGE INTESTINE CARCINOMA
     Dosage: DOSAGE IS UNCERTAIN.
     Route: 048
  3. ALOXI [Concomitant]
     Dosage: DOSAGE IS UNCERTAIN.
     Route: 042
  4. AVASTIN [Suspect]
     Indication: LARGE INTESTINE CARCINOMA
     Route: 041
     Dates: end: 20111221
  5. FAMOTIDINE [Concomitant]
     Dosage: DOSAGE IS UNCERTAIN.
     Route: 065
  6. DECADRON [Concomitant]
     Dosage: DOSAGE IS UNCERTAIN.
     Route: 065

REACTIONS (6)
  - DYSARTHRIA [None]
  - MUSCULAR WEAKNESS [None]
  - DIZZINESS [None]
  - BLEPHAROSPASM [None]
  - DYSPNOEA [None]
  - WHEEZING [None]
